FAERS Safety Report 9928010 (Version 1)
Quarter: 2014Q1

REPORT INFORMATION
  Report Type: Spontaneous
  Country: GR (occurrence: GR)
  Receive Date: 20140227
  Receipt Date: 20140227
  Transmission Date: 20141002
  Serious: Yes (Other)
  Sender: FDA-Public Use
  Company Number: GR-ROCHE-1354807

PATIENT
  Age: 52 Year
  Sex: Female

DRUGS (4)
  1. MABTHERA [Suspect]
     Indication: RHEUMATOID ARTHRITIS
     Route: 065
  2. CORTISONE [Suspect]
     Indication: RHEUMATOID ARTHRITIS
     Route: 065
  3. ARAVA [Suspect]
     Indication: RHEUMATOID ARTHRITIS
     Route: 065
  4. METHOTREXATE [Suspect]
     Indication: RHEUMATOID ARTHRITIS
     Route: 065

REACTIONS (3)
  - Feeling of body temperature change [Unknown]
  - Pharyngeal disorder [Unknown]
  - Pruritus [Not Recovered/Not Resolved]
